FAERS Safety Report 15393666 (Version 2)
Quarter: 2019Q1

REPORT INFORMATION
  Report Type: Spontaneous
  Country: CA (occurrence: CA)
  Receive Date: 20180917
  Receipt Date: 20190211
  Transmission Date: 20190417
  Serious: Yes (Hospitalization)
  Sender: FDA-Public Use
  Company Number: CA-ACTELION-A-US2018-178758

PATIENT
  Age: 63 Year
  Sex: Female

DRUGS (20)
  1. WARFARIN [Concomitant]
     Active Substance: WARFARIN
  2. ZANTAC [Concomitant]
     Active Substance: RANITIDINE HYDROCHLORIDE
  3. TRACLEER [Suspect]
     Active Substance: BOSENTAN
     Indication: PULMONARY ARTERIAL HYPERTENSION
     Dosage: 125 MG, BID
     Route: 048
     Dates: start: 20180530
  4. PREGABALIN. [Concomitant]
     Active Substance: PREGABALIN
  5. ROPINIROLE. [Concomitant]
     Active Substance: ROPINIROLE
  6. SALINEX [Concomitant]
  7. CARIPUL [Suspect]
     Active Substance: EPOPROSTENOL
     Indication: PULMONARY ARTERIAL HYPERTENSION
     Dosage: UNK
     Route: 042
     Dates: start: 20180530
  8. LASIX [Concomitant]
     Active Substance: FUROSEMIDE
     Dosage: 40MG X 1 WEEKS THEN 40MG
  9. SYMBICORT [Concomitant]
     Active Substance: BUDESONIDE\FORMOTEROL FUMARATE DIHYDRATE
  10. RIZATRIPTAN. [Concomitant]
     Active Substance: RIZATRIPTAN
  11. BUSCOPAN [Concomitant]
     Active Substance: BUTYLSCOPOLAMINE BROMIDE
  12. CEFPROZIL. [Concomitant]
     Active Substance: CEFPROZIL
  13. OXYCODONE [Concomitant]
     Active Substance: OXYCODONE
  14. RHINARIS [Concomitant]
  15. CLONAZEPAM. [Concomitant]
     Active Substance: CLONAZEPAM
  16. SALBUTAMOL [Concomitant]
     Active Substance: ALBUTEROL
  17. ACIDOPHILUS [Concomitant]
     Active Substance: LACTOBACILLUS ACIDOPHILUS
  18. CARIPUL [Suspect]
     Active Substance: EPOPROSTENOL
     Dosage: 3 MG, QD
     Route: 042
  19. ADCIRCA [Concomitant]
     Active Substance: TADALAFIL
  20. PANTOPRAZOLE [Concomitant]
     Active Substance: PANTOPRAZOLE

REACTIONS (4)
  - Dehydration [Recovering/Resolving]
  - Diarrhoea [Recovering/Resolving]
  - Nausea [Recovering/Resolving]
  - Vomiting [Recovering/Resolving]

NARRATIVE: CASE EVENT DATE: 20180906
